FAERS Safety Report 6896967-2 (Version None)
Quarter: 2010Q3

REPORT INFORMATION
  Report Type: 
  Country: None (occurrence: None)
  Receive Date: 20100802
  Receipt Date: 20070313
  Transmission Date: 20110219
  Serious: No
  Sender: FDA-Public Use
  Company Number: US-PFIZER INC-2007020849

PATIENT
  Age: 11 Year
  Sex: Female

DRUGS (2)
  1. LYRICA [Suspect]
     Indication: PERIPHERAL NERVE INJURY
     Dates: start: 20070201
  2. GABAPENTIN [Concomitant]
     Indication: PERIPHERAL NERVE INJURY

REACTIONS (1)
  - BACK PAIN [None]
